FAERS Safety Report 5405296-5 (Version None)
Quarter: 2007Q3

REPORT INFORMATION
  Report Type: 
  Country: None (occurrence: None)
  Receive Date: 20070803
  Receipt Date: 20070724
  Transmission Date: 20080115
  Serious: Yes (Other)
  Sender: FDA-Public Use
  Company Number: B0479192A

PATIENT
  Age: 53 Year
  Sex: Female

DRUGS (1)
  1. AVANDAMET [Suspect]
     Route: 065

REACTIONS (1)
  - CARDIAC FAILURE [None]
